FAERS Safety Report 15440863 (Version 1)
Quarter: 2018Q3

REPORT INFORMATION
  Report Type: Spontaneous
  Country: US (occurrence: US)
  Receive Date: 20180925
  Receipt Date: 20180925
  Transmission Date: 20181010
  Serious: Yes (Life-Threatening, Disabling, Other)
  Sender: FDA-Public Use
  Company Number: None

PATIENT
  Age: 31 Year
  Sex: Male
  Weight: 129.6 kg

DRUGS (3)
  1. MONTELUKAST SODIUM TABLETS 10MG, LOT MON17384 [Suspect]
     Active Substance: MONTELUKAST SODIUM
     Indication: ASTHMA
     Dosage: ?          QUANTITY:30 TABLET(S);?
     Route: 048
  2. LOSARTAN. [Suspect]
     Active Substance: LOSARTAN
  3. MONTELUKAST SODIUM TABLETS 10MG, LOT MON17384 [Suspect]
     Active Substance: MONTELUKAST SODIUM
     Indication: RHINITIS ALLERGIC
     Dosage: ?          QUANTITY:30 TABLET(S);?
     Route: 048

REACTIONS (17)
  - Hypoaesthesia [None]
  - Pharyngeal oedema [None]
  - Throat irritation [None]
  - Asthma [None]
  - Duplicate therapy error [None]
  - Therapy non-responder [None]
  - Muscle spasms [None]
  - Hypersensitivity [None]
  - Dizziness [None]
  - Paraesthesia [None]
  - Abdominal pain [None]
  - Wrong drug administered [None]
  - Upper respiratory tract infection [None]
  - Drug dispensing error [None]
  - Blood pressure fluctuation [None]
  - Quality of life decreased [None]
  - Oropharyngeal pain [None]

NARRATIVE: CASE EVENT DATE: 20180423
